FAERS Safety Report 6543618-2 (Version None)
Quarter: 2010Q2

REPORT INFORMATION
  Report Type: 
  Country: None (occurrence: None)
  Receive Date: 20100119
  Receipt Date: 20100119
  Transmission Date: 20101027
  Serious: No
  Sender: FDA-Public Use
  Company Number: None

PATIENT
  Sex: Male
  Weight: 79.8331 kg

DRUGS (1)
  1. RISPERDAL CONSTA [Suspect]
     Indication: PSYCHOTIC DISORDER
     Dosage: 37.5 MG Q2WK IM
     Route: 030
     Dates: start: 20100114

REACTIONS (2)
  - DEVICE BREAKAGE [None]
  - SYRINGE ISSUE [None]
